FAERS Safety Report 6555192-5 (Version None)
Quarter: 2010Q1

REPORT INFORMATION
  Report Type: 
  Country: None (occurrence: None)
  Receive Date: 20100128
  Receipt Date: 20100120
  Transmission Date: 20100710
  Serious: Yes (Other)
  Sender: FDA-Public Use
  Company Number: US-AMGEN-QUU347485

PATIENT
  Sex: Female
  Weight: 113 kg

DRUGS (2)
  1. ENBREL [Suspect]
     Indication: RHEUMATOID ARTHRITIS
     Route: 058
     Dates: start: 20070830
  2. LEFLUNOMIDE [Concomitant]
     Dates: start: 20080501

REACTIONS (1)
  - ARNOLD-CHIARI MALFORMATION [None]
